FAERS Safety Report 25701830 (Version 1)
Quarter: 2025Q3

REPORT INFORMATION
  Report Type: Spontaneous
  Country: US (occurrence: US)
  Receive Date: 20250819
  Receipt Date: 20250819
  Transmission Date: 20251021
  Serious: No
  Sender: GALPHARM INTERNATIONAL
  Company Number: US-PERRIGO-24US007511

PATIENT
  Sex: Female
  Weight: 56.236 kg

DRUGS (15)
  1. MINOXIDIL [Suspect]
     Active Substance: MINOXIDIL
     Indication: Alopecia
     Dosage: 1 ML, QD
     Route: 061
     Dates: start: 2017, end: 20240213
  2. MINOXIDIL [Suspect]
     Active Substance: MINOXIDIL
     Dosage: 1 ML, QD
     Route: 061
     Dates: start: 20240214
  3. LUMIGAN [Concomitant]
     Active Substance: BIMATOPROST
     Indication: Glaucoma
     Route: 065
     Dates: start: 2016
  4. TACROLIMUS [Concomitant]
     Active Substance: TACROLIMUS
     Indication: Autoimmune disorder
     Route: 065
     Dates: start: 2014
  5. PEPCID AC [Concomitant]
     Active Substance: FAMOTIDINE
     Indication: Gastrooesophageal reflux disease
     Route: 065
     Dates: start: 2022
  6. ROPINIROLE [Concomitant]
     Active Substance: ROPINIROLE
     Indication: Restless legs syndrome
     Route: 065
     Dates: start: 2021
  7. CALCIUM [Concomitant]
     Active Substance: CALCIUM
     Indication: Supplementation therapy
     Route: 065
     Dates: start: 2004
  8. VITAMIN D NOS [Concomitant]
     Active Substance: CHOLECALCIFEROL\ERGOCALCIFEROL
     Indication: Supplementation therapy
     Route: 065
     Dates: start: 2004
  9. HERBALS\PLANTAGO OVATA LEAF [Concomitant]
     Active Substance: HERBALS\PLANTAGO OVATA LEAF
     Indication: Supplementation therapy
     Route: 065
     Dates: start: 2004
  10. BIOTIN [Concomitant]
     Active Substance: BIOTIN
     Indication: Supplementation therapy
     Route: 065
     Dates: start: 2004
  11. VALACYCLOVIR [Concomitant]
     Active Substance: VALACYCLOVIR HYDROCHLORIDE
     Indication: Neuralgia
     Route: 065
     Dates: start: 2022
  12. BENADRYL ALLERGY [Concomitant]
     Active Substance: DIPHENHYDRAMINE HYDROCHLORIDE
     Indication: Hypersensitivity
     Route: 065
     Dates: start: 2014
  13. SLEEP AID (DIPHENHYDRAMINE HYDROCHLORIDE) [Concomitant]
     Active Substance: DIPHENHYDRAMINE HYDROCHLORIDE
     Indication: Insomnia
     Route: 065
     Dates: start: 2014
  14. QUERCETIN [Concomitant]
     Active Substance: QUERCETIN
     Indication: Cystitis interstitial
     Route: 065
     Dates: start: 2023
  15. VALIUM [Concomitant]
     Active Substance: DIAZEPAM
     Indication: Bladder spasm
     Route: 065
     Dates: start: 2023

REACTIONS (2)
  - Application site plaque [Recovering/Resolving]
  - Inappropriate schedule of product administration [Unknown]

NARRATIVE: CASE EVENT DATE: 20170101
